FAERS Safety Report 23449985 (Version 1)
Quarter: 2024Q1

REPORT INFORMATION
  Report Type: Spontaneous
  Country: BR (occurrence: BR)
  Receive Date: 20240129
  Receipt Date: 20240129
  Transmission Date: 20240410
  Serious: Yes (Other)
  Sender: FDA-Public Use
  Company Number: BR-GLAXOSMITHKLINE-BR2024011299

PATIENT

DRUGS (2)
  1. ALBUTEROL [Suspect]
     Active Substance: ALBUTEROL
     Indication: Product used for unknown indication
     Dosage: 3 SPRAYS EVERY 4 HOURS
     Dates: start: 20240123
  2. ALBUTEROL [Suspect]
     Active Substance: ALBUTEROL
     Dosage: 2 SPRAYS A MAXIMUM OF 4 TIMES A DAY.
     Dates: start: 20240123

REACTIONS (4)
  - Haematemesis [Unknown]
  - Cough [Unknown]
  - Subcutaneous abscess [Unknown]
  - Product prescribing error [Unknown]
